FAERS Safety Report 10888707 (Version 2)
Quarter: 2015Q3

REPORT INFORMATION
  Report Type: Spontaneous
  Country: JP (occurrence: JP)
  Receive Date: 20150305
  Receipt Date: 20150723
  Transmission Date: 20151125
  Serious: Yes (Other)
  Sender: FDA-Public Use
  Company Number: JP-ASTRAZENECA-2015SE19262

PATIENT
  Age: 36 Year
  Sex: Female

DRUGS (2)
  1. MARCAINE [Suspect]
     Active Substance: BUPIVACAINE HYDROCHLORIDE
     Indication: SPINAL ANAESTHESIA
     Route: 037
     Dates: start: 20150206, end: 20150206
  2. FENTANYL. [Suspect]
     Active Substance: FENTANYL
     Route: 042
     Dates: start: 20150206, end: 20150206

REACTIONS (3)
  - Hypoaesthesia [Recovering/Resolving]
  - Gait disturbance [Recovered/Resolved]
  - Muscular weakness [Recovered/Resolved]

NARRATIVE: CASE EVENT DATE: 20150206
